FAERS Safety Report 6466079-0 (Version None)
Quarter: 2009Q4

REPORT INFORMATION
  Report Type: 
  Country: None (occurrence: None)
  Receive Date: 20091201
  Receipt Date: 20091201
  Transmission Date: 20100525
  Serious: No
  Sender: FDA-Public Use
  Company Number: None

PATIENT
  Sex: Male
  Weight: 65.7716 kg

DRUGS (2)
  1. HALFLYTELY [Suspect]
     Indication: BOWEL PREPARATION
     Dosage: TWO 5 MG ONCE 047
     Dates: start: 20091026
  2. HALFLYTELY [Suspect]
     Indication: COLONOSCOPY
     Dosage: TWO 5 MG ONCE 047
     Dates: start: 20091026

REACTIONS (5)
  - ABDOMINAL PAIN [None]
  - ASTHENIA [None]
  - COLD SWEAT [None]
  - RETCHING [None]
  - VOMITING [None]
